FAERS Safety Report 4567067-1 (Version None)
Quarter: 2005Q1

REPORT INFORMATION
  Report Type: 
  Country: None (occurrence: None)
  Receive Date: 20050201
  Receipt Date: 20050120
  Transmission Date: 20050727
  Serious: Yes (Other)
  Sender: FDA-Public Use
  Company Number: US-ROCHE-393326

PATIENT
  Age: 38 Year
  Sex: Male
  Weight: 81.6 kg

DRUGS (3)
  1. TAMIFLU [Suspect]
     Route: 048
     Dates: start: 20050115, end: 20050115
  2. GLEEVEC [Interacting]
     Route: 048
  3. ALBUTEROL [Concomitant]
     Indication: INFLUENZA
     Route: 055
     Dates: start: 20050115, end: 20050115

REACTIONS (4)
  - BLOOD BLISTER [None]
  - DRUG INTERACTION [None]
  - EPISTAXIS [None]
  - THROMBOCYTOPENIA [None]
